FAERS Safety Report 22064542 (Version 1)
Quarter: 2023Q1

REPORT INFORMATION
  Report Type: Spontaneous
  Country: RS (occurrence: RS)
  Receive Date: 20230306
  Receipt Date: 20230306
  Transmission Date: 20230418
  Serious: Yes (Hospitalization, Other)
  Sender: FDA-Public Use
  Company Number: RS-JNJFOC-20230302583

PATIENT
  Sex: Male

DRUGS (4)
  1. DARZALEX [Suspect]
     Active Substance: DARATUMUMAB
     Indication: Plasma cell myeloma
     Dosage: D1 C1
     Route: 065
     Dates: start: 20230118
  2. DARZALEX [Suspect]
     Active Substance: DARATUMUMAB
     Dosage: C1 DAY 8
     Route: 065
     Dates: start: 20230130
  3. DARZALEX [Suspect]
     Active Substance: DARATUMUMAB
     Dosage: C1 DAY 15
     Route: 065
     Dates: start: 20230207
  4. DARZALEX [Suspect]
     Active Substance: DARATUMUMAB
     Dosage: C2 DAY 1?DARATUMUMAB THIS PART OF THE CAR-T THERAPY PATHWAY
     Route: 065
     Dates: start: 20230224

REACTIONS (2)
  - COVID-19 [Recovered/Resolved]
  - Respiratory tract infection [Recovered/Resolved]

NARRATIVE: CASE EVENT DATE: 20230123
